FAERS Safety Report 16183547 (Version 2)
Quarter: 2019Q3

REPORT INFORMATION
  Report Type: Other
  Country: DE (occurrence: DE)
  Receive Date: 20190411
  Receipt Date: 20190820
  Transmission Date: 20191004
  Serious: Yes (Other)
  Sender: FDA-Public Use
  Company Number: DE-MACLEODS PHARMACEUTICALS US LTD-MAC2019020826

PATIENT

DRUGS (1)
  1. LEVOFLOXACIN MACLEODS 500 MG FILMTABLETTEN [Suspect]
     Active Substance: LEVOFLOXACIN
     Indication: PRODUCT USED FOR UNKNOWN INDICATION
     Dosage: 500 MILLIGRAM, FILM COATED TABLET
     Route: 048
     Dates: start: 20190308, end: 20190313

REACTIONS (13)
  - Walking aid user [Not Recovered/Not Resolved]
  - Myalgia [Not Recovered/Not Resolved]
  - Blood pressure abnormal [Unknown]
  - Gait disturbance [Not Recovered/Not Resolved]
  - Joint noise [Not Recovered/Not Resolved]
  - Pain in extremity [Unknown]
  - Paraesthesia [Not Recovered/Not Resolved]
  - Headache [Not Recovered/Not Resolved]
  - Tendon pain [Not Recovered/Not Resolved]
  - Cardiac discomfort [Unknown]
  - Eye irritation [Not Recovered/Not Resolved]
  - Arthralgia [Not Recovered/Not Resolved]
  - Adverse reaction [Unknown]

NARRATIVE: CASE EVENT DATE: 20190309
